FAERS Safety Report 5292510-2 (Version None)
Quarter: 2007Q2

REPORT INFORMATION
  Report Type: 
  Country: None (occurrence: None)
  Receive Date: 20070410
  Receipt Date: 20070330
  Transmission Date: 20071010
  Serious: Yes (Hospitalization, Other)
  Sender: FDA-Public Use
  Company Number: US-PFIZER INC-2007025758

PATIENT
  Sex: Female
  Weight: 63.5 kg

DRUGS (3)
  1. CELEBREX [Suspect]
     Indication: OSTEOARTHRITIS
     Dates: start: 20070301, end: 20070318
  2. COUMADIN [Concomitant]
  3. DIURETICS [Concomitant]

REACTIONS (8)
  - ASTHENIA [None]
  - GOUT [None]
  - HEPATIC ENZYME INCREASED [None]
  - HYPERSENSITIVITY [None]
  - JAUNDICE [None]
  - PROTHROMBIN TIME PROLONGED [None]
  - PRURITUS [None]
  - RASH [None]
